FAERS Safety Report 8986223 (Version 1)
Quarter: 2012Q4

REPORT INFORMATION
  Report Type: Spontaneous
  Country: JP (occurrence: None)
  Receive Date: 20121217
  Receipt Date: 20121217
  Transmission Date: 20130627
  Serious: Yes (Hospitalization)
  Sender: FDA-Public Use
  Company Number: THQ2012A11018

PATIENT
  Age: 62 Year
  Sex: Male

DRUGS (8)
  1. TAKEPRON [Suspect]
     Dosage: Beginning of dosage day: Trial Preinitiation
     Route: 048
  2. TOCILIZUMAB [Suspect]
     Dosage: 1 IN 2 WK
     Route: 058
     Dates: start: 20100930
  3. PLACEBO [Suspect]
     Dosage: 1 in 4 wk
     Route: 042
     Dates: start: 20100930
  4. PREDONINE [Suspect]
     Dosage: BEGINNING OF DOSAGE DAY: TRIAL PREINITIATION
     Route: 048
  5. LOXONIN [Suspect]
     Dosage: BEGINNING OF DOSAGE DAY: TRIAL PREINITIATION
     Route: 048
  6. LIPOVAS [Suspect]
     Dosage: BEGINNING OF DOSAGE DAY: TRIAL PREINITIATION
     Route: 048
  7. RIFADIN (RIFAMPICIN) [Concomitant]
  8. ISCOTIN (ISONIAZID) [Concomitant]

REACTIONS (3)
  - Large intestine polyp [None]
  - Erythema multiforme [None]
  - Rash [None]
